FAERS Safety Report 15623245 (Version 1)
Quarter: 2018Q4

REPORT INFORMATION
  Report Type: Spontaneous
  Country: TW (occurrence: TW)
  Receive Date: 20181115
  Receipt Date: 20181115
  Transmission Date: 20190205
  Serious: Yes (Other)
  Sender: FDA-Public Use
  Company Number: TW-ELI_LILLY_AND_COMPANY-TW201811003613

PATIENT
  Age: 51 Year
  Sex: Female

DRUGS (3)
  1. TAXOTERE [Concomitant]
     Active Substance: DOCETAXEL
     Dosage: 70 MG, CYCLICAL
     Route: 065
  2. RAMUCIRUMAB [Suspect]
     Active Substance: RAMUCIRUMAB
     Indication: LUNG ADENOCARCINOMA STAGE II
     Dosage: 700 MG, CYCLICAL
     Route: 065
     Dates: start: 20180414
  3. TAXOTERE [Concomitant]
     Active Substance: DOCETAXEL
     Indication: LUNG ADENOCARCINOMA STAGE II
     Dosage: 50 MG, CYCLICAL
     Route: 065
     Dates: start: 20180414

REACTIONS (3)
  - Metastasis [Unknown]
  - Pleural effusion [Unknown]
  - Lymphadenopathy [Unknown]
